FAERS Safety Report 5407775-3 (Version None)
Quarter: 2007Q3

REPORT INFORMATION
  Report Type: 
  Country: None (occurrence: None)
  Receive Date: 20070807
  Receipt Date: 20070724
  Transmission Date: 20080115
  Serious: Yes (Other)
  Sender: FDA-Public Use
  Company Number: US-SHR-US-2007-027520

PATIENT
  Age: 46 Year
  Sex: Female

DRUGS (7)
  1. BETASERON [Suspect]
     Indication: RELAPSING-REMITTING MULTIPLE SCLEROSIS
     Dosage: 8 MIU, EVERY 2D
     Route: 058
     Dates: start: 20060523
  2. LEXAPRO [Concomitant]
  3. ZETIA [Concomitant]
  4. NOVASTAN [Concomitant]
  5. HYZAAR [Concomitant]
  6. SYNTHROID [Concomitant]
  7. PRAVACHOL [Concomitant]
     Dosage: 80 MG, 1X/DAY
     Route: 048

REACTIONS (3)
  - MULTIPLE SCLEROSIS [None]
  - MUSCLE SPASMS [None]
  - THYROID NEOPLASM [None]
